FAERS Safety Report 9022590 (Version 1)
Quarter: 2013Q1

REPORT INFORMATION
  Report Type: Spontaneous
  Country: US (occurrence: US)
  Receive Date: 20130118
  Receipt Date: 20130118
  Transmission Date: 20140127
  Serious: No
  Sender: FDA-Public Use
  Company Number: US-GLAXOSMITHKLINE-A0992694A

PATIENT
  Age: 45 Year
  Sex: Male

DRUGS (4)
  1. PROMACTA [Suspect]
     Indication: AUTOIMMUNE THROMBOCYTOPENIA
     Dosage: 50MG PER DAY
     Route: 048
     Dates: start: 20120810
  2. PREDNISONE [Suspect]
     Indication: AUTOIMMUNE THROMBOCYTOPENIA
     Dosage: 110MG PER DAY
     Route: 048
     Dates: start: 20120705
  3. NEXIUM [Concomitant]
  4. MULTI VITAMIN [Concomitant]

REACTIONS (1)
  - Fatigue [Recovered/Resolved]
